FAERS Safety Report 24272426 (Version 1)
Quarter: 2024Q3

REPORT INFORMATION
  Report Type: Spontaneous
  Country: DE (occurrence: DE)
  Receive Date: 20240902
  Receipt Date: 20240902
  Transmission Date: 20241016
  Serious: Yes (Other)
  Sender: BRISTOL MYERS SQUIBB
  Company Number: DE-BRISTOL-MYERS SQUIBB COMPANY-2024-136888

PATIENT
  Age: 61 Year
  Sex: Male

DRUGS (14)
  1. IPILIMUMAB [Suspect]
     Active Substance: IPILIMUMAB
     Indication: Malignant melanoma
     Dates: start: 201908
  2. IPILIMUMAB [Suspect]
     Active Substance: IPILIMUMAB
     Dosage: 4TH DOSE OF IPILIMUMAB/ NIVOLUMAB
     Dates: start: 201910
  3. NIVOLUMAB [Suspect]
     Active Substance: NIVOLUMAB
     Indication: Malignant melanoma
     Dosage: DOSE : NIVO (1MG/KG), IPI (3MG/KG);     FREQ : UNAVAILABLE
     Dates: start: 201908
  4. NIVOLUMAB [Suspect]
     Active Substance: NIVOLUMAB
     Dosage: 4TH DOSE OF IPILIMUMAB/ NIVOLUMAB
     Dates: start: 201910
  5. NIVOLUMAB [Suspect]
     Active Substance: NIVOLUMAB
     Dates: start: 201911
  6. NIVOLUMAB [Suspect]
     Active Substance: NIVOLUMAB
     Dosage: 14TH DOSE OF NIVOLUMAB
     Dates: start: 202005
  7. NIVOLUMAB [Suspect]
     Active Substance: NIVOLUMAB
     Dosage: 14TH DOSE OF NIVOLUMAB
     Dates: start: 202005
  8. NIVOLUMAB [Suspect]
     Active Substance: NIVOLUMAB
     Dosage: 22ND DOSE OF NIVOLUMAB
     Dates: start: 202012
  9. NIVOLUMAB [Suspect]
     Active Substance: NIVOLUMAB
     Dosage: 25TH DOSE OF NIVOLUMAB
     Dates: start: 202103
  10. NIVOLUMAB [Suspect]
     Active Substance: NIVOLUMAB
     Dosage: 45TH DOSE OF NIVOLUMAB
     Dates: start: 202210
  11. NIVOLUMAB [Suspect]
     Active Substance: NIVOLUMAB
     Dosage: 52ND DOSE OF NIVOLUMAB
     Dates: start: 202305
  12. NIVOLUMAB [Suspect]
     Active Substance: NIVOLUMAB
     Dosage: 56TH DOSE OF NIVOLUMAB
     Dates: start: 202309
  13. NIVOLUMAB [Suspect]
     Active Substance: NIVOLUMAB
     Dosage: 65TH DOSE OF NIVOLUMAB
     Dates: start: 202405
  14. NIVOLUMAB [Suspect]
     Active Substance: NIVOLUMAB
     Dosage: 68TH DOSE OF NIVOLUMAB
     Dates: start: 202408

REACTIONS (4)
  - Malignant neoplasm progression [Unknown]
  - Blood brain barrier defect [Unknown]
  - Brain oedema [Unknown]
  - Radiation necrosis [Unknown]

NARRATIVE: CASE EVENT DATE: 20191101
